FAERS Safety Report 17495948 (Version 1)
Quarter: 2020Q1

REPORT INFORMATION
  Report Type: Spontaneous
  Country: US (occurrence: US)
  Receive Date: 20200303
  Receipt Date: 20200303
  Transmission Date: 20200409
  Serious: Yes (Hospitalization)
  Sender: FDA-Public Use
  Company Number: US-ASTRAZENECA-2020SE29005

PATIENT
  Sex: Female
  Weight: 122.5 kg

DRUGS (1)
  1. SYMBICORT [Suspect]
     Active Substance: BUDESONIDE\FORMOTEROL FUMARATE DIHYDRATE
     Indication: ASTHMA
     Dosage: 160/4.5 UG PER INHALATION,TWO TIMES A DAY
     Route: 055

REACTIONS (7)
  - Cerebrovascular accident [Unknown]
  - Memory impairment [Unknown]
  - Drug delivery system malfunction [Unknown]
  - Intentional device misuse [Unknown]
  - Cough [Unknown]
  - Wrong technique in product usage process [Unknown]
  - Device use issue [Unknown]
